FAERS Safety Report 7571821-1 (Version None)
Quarter: 2011Q2

REPORT INFORMATION
  Report Type: 
  Country: None (occurrence: None)
  Receive Date: 20110624
  Receipt Date: 20110623
  Transmission Date: 20111010
  Serious: Yes (Hospitalization)
  Sender: FDA-Public Use
  Company Number: US-PFIZER INC-2011123488

PATIENT
  Sex: Female

DRUGS (4)
  1. MILNACIPRAN HYDROCHLORIDE [Suspect]
     Indication: FIBROMYALGIA
     Dosage: 12.5 MG, DAILY
     Route: 048
     Dates: start: 20110419, end: 20110101
  2. MILNACIPRAN HYDROCHLORIDE [Suspect]
     Indication: ANXIETY
  3. MILNACIPRAN HYDROCHLORIDE [Suspect]
     Indication: DEPRESSION
  4. LYRICA [Suspect]
     Dosage: UNK

REACTIONS (1)
  - GRAND MAL CONVULSION [None]
